FAERS Safety Report 9524510 (Version 2)
Quarter: 2013Q4

REPORT INFORMATION
  Report Type: Spontaneous
  Country: US (occurrence: US)
  Receive Date: 20130916
  Receipt Date: 20131009
  Transmission Date: 20140711
  Serious: No
  Sender: FDA-Public Use
  Company Number: US-PFIZER INC-2013263460

PATIENT
  Age: 61 Year
  Sex: Female

DRUGS (4)
  1. XELJANZ [Suspect]
     Indication: RHEUMATOID ARTHRITIS
     Dosage: 5 MG, 2X/DAY
     Route: 048
     Dates: start: 20130212, end: 20130828
  2. XELJANZ [Suspect]
     Dosage: 5 MG, 1X/DAY
     Dates: start: 20130829
  3. KINERET [Concomitant]
     Dosage: 100MG/0.67ML
  4. ENBREL [Concomitant]
     Dosage: 50 MG, UNK

REACTIONS (1)
  - Lymphocyte count decreased [Unknown]
